FAERS Safety Report 9230061 (Version 1)
Quarter: 2013Q2

REPORT INFORMATION
  Report Type: Spontaneous
  Country: US (occurrence: US)
  Receive Date: 20130415
  Receipt Date: 20130415
  Transmission Date: 20140414
  Serious: No
  Sender: FDA-Public Use
  Company Number: US-009507513-1304USA005838

PATIENT
  Sex: Female

DRUGS (5)
  1. JANUVIA [Suspect]
     Indication: TYPE 2 DIABETES MELLITUS
     Dosage: 50 MG, QD
     Route: 048
  2. JANUVIA [Suspect]
     Dosage: SPLIT THE TABLETS AND USED
  3. ASPIRIN [Concomitant]
  4. VITAMIN D (UNSPECIFIED) [Concomitant]
  5. GLIPIZIDE [Concomitant]

REACTIONS (2)
  - Abdominal discomfort [Not Recovered/Not Resolved]
  - Wrong technique in drug usage process [Unknown]
